FAERS Safety Report 4715608-3 (Version None)
Quarter: 2005Q3

REPORT INFORMATION
  Report Type: 
  Country: None (occurrence: None)
  Receive Date: 20050718
  Receipt Date: 20050509
  Transmission Date: 20060218
  Serious: Yes (Other)
  Sender: FDA-Public Use
  Company Number: US-BRISTOL-MYERS SQUIBB COMPANY-12960647

PATIENT
  Age: 71 Year
  Sex: Female
  Weight: 73 kg

DRUGS (18)
  1. ERBITUX [Suspect]
     Indication: COLON CANCER METASTATIC
     Dosage: REC'D TOTAL OF 5 INFUSIONS: LOAD DOSE (700 MG) 08-APR-05, 5TH DOSE 06-MAY-05
     Route: 042
     Dates: start: 20050101, end: 20050101
  2. BENADRYL [Concomitant]
     Indication: PREMEDICATION
     Route: 042
  3. TYLENOL [Concomitant]
     Indication: PREMEDICATION
     Route: 048
  4. IRINOTECAN [Concomitant]
  5. FLUOROURACIL [Concomitant]
  6. PROGRAF [Concomitant]
     Dosage: DOSAGE FORM = 1 TABLET
  7. LASIX [Concomitant]
  8. LORAZEPAM [Concomitant]
     Dosage: TAKEN AT BEDTIME
  9. TOPROL-XL [Concomitant]
  10. VERAPAMIL [Concomitant]
  11. LOMOTIL [Concomitant]
     Dosage: 2.5 MG, 1-2 TABLETS EVERY 4-6 HOURS AS NEEDED.
  12. COMPAZINE [Concomitant]
     Indication: NAUSEA
     Dosage: COMPAZINE SUPPOSITORY AS NEEDED
  13. MAGNESIUM [Concomitant]
     Dosage: TAKEN AT BEDTIME
  14. ACIPHEX [Concomitant]
  15. TETRACYCLINE [Concomitant]
  16. LIDOCAINE HCL VISCOUS [Concomitant]
  17. NYSTATIN [Concomitant]
  18. HYDROCORTISONE [Concomitant]
     Indication: STOMATITIS
     Dosage: TWICE DAILY AS NEEDED.

REACTIONS (3)
  - BLOOD PRESSURE INCREASED [None]
  - DERMATITIS ACNEIFORM [None]
  - HYPERSENSITIVITY [None]
